FAERS Safety Report 4802879-8 (Version None)
Quarter: 2005Q4

REPORT INFORMATION
  Report Type: 
  Country: None (occurrence: None)
  Receive Date: 20051013
  Receipt Date: 20050928
  Transmission Date: 20060501
  Serious: Yes (Disabling, Other)
  Sender: FDA-Public Use
  Company Number: GBS050818155

PATIENT
  Age: 80 Year
  Sex: Female
  Weight: 57.6068 kg

DRUGS (5)
  1. FORTEO [Suspect]
     Indication: OSTEOPOROSIS
     Dosage: 20 UG
     Dates: start: 20050809, end: 20050816
  2. ADALAT [Concomitant]
  3. OMEPRAZOLE [Concomitant]
  4. FRUMIL [Concomitant]
  5. DOXAZOSIN [Concomitant]

REACTIONS (11)
  - ABDOMINAL PAIN [None]
  - ANGER [None]
  - DIPLOPIA [None]
  - DISORIENTATION [None]
  - HEADACHE [None]
  - MALAISE [None]
  - MUSCLE SPASMS [None]
  - NAUSEA [None]
  - PHARMACEUTICAL PRODUCT COMPLAINT [None]
  - RETCHING [None]
  - TREMOR [None]
